FAERS Safety Report 22649467 (Version 1)
Quarter: 2023Q2

REPORT INFORMATION
  Report Type: Report from Study
  Country: DZ (occurrence: DZ)
  Receive Date: 20230628
  Receipt Date: 20230628
  Transmission Date: 20230722
  Serious: Yes (Other)
  Sender: FDA-Public Use
  Company Number: DZ-BAYER-2023A086551

PATIENT
  Age: 35 Year
  Sex: Female

DRUGS (1)
  1. INTERFERON BETA-1B [Suspect]
     Active Substance: INTERFERON BETA-1B
     Indication: Multiple sclerosis
     Dosage: 1 CC,
     Route: 058
     Dates: start: 20230516

REACTIONS (2)
  - Hypertension [Not Recovered/Not Resolved]
  - Muscle tightness [Not Recovered/Not Resolved]

NARRATIVE: CASE EVENT DATE: 20230613
